FAERS Safety Report 10282009 (Version 1)
Quarter: 2014Q3

REPORT INFORMATION
  Report Type: Spontaneous
  Country: US (occurrence: US)
  Receive Date: 20140707
  Receipt Date: 20140707
  Transmission Date: 20150326
  Serious: Yes (Hospitalization)
  Sender: FDA-Public Use
  Company Number: US-GLAXOSMITHKLINE-A1079032A

PATIENT
  Sex: Female

DRUGS (3)
  1. IPRATROPIUM [Concomitant]
     Active Substance: IPRATROPIUM
  2. FLOVENT [Suspect]
     Active Substance: FLUTICASONE PROPIONATE
     Indication: PRODUCT USED FOR UNKNOWN INDICATION
     Dosage: 1PUFF TWICE PER DAY
     Route: 055
  3. ADVAIR HFA [Suspect]
     Active Substance: FLUTICASONE PROPIONATE\SALMETEROL XINAFOATE
     Indication: PRODUCT USED FOR UNKNOWN INDICATION
     Dosage: 2PUFF TWICE PER DAY
     Route: 055

REACTIONS (19)
  - Dyspnoea [Unknown]
  - Rehabilitation therapy [Unknown]
  - Logorrhoea [Not Recovered/Not Resolved]
  - Communication disorder [Not Recovered/Not Resolved]
  - Cognitive disorder [Not Recovered/Not Resolved]
  - Hallucination [Unknown]
  - Aortic valve replacement [Unknown]
  - Dizziness [Unknown]
  - Arrhythmia [Unknown]
  - Mechanical ventilation [Recovered/Resolved]
  - Feeling abnormal [Unknown]
  - Endotracheal intubation [Recovered/Resolved]
  - Drug ineffective [Unknown]
  - Ill-defined disorder [Recovered/Resolved]
  - Headache [Unknown]
  - Malaise [Unknown]
  - Tachycardia [Unknown]
  - Loss of consciousness [Recovered/Resolved]
  - Tracheostomy [Recovered/Resolved]

NARRATIVE: CASE EVENT DATE: 2013
